FAERS Safety Report 24622419 (Version 1)
Quarter: 2024Q4

REPORT INFORMATION
  Report Type: Spontaneous
  Country: US (occurrence: US)
  Receive Date: 20241115
  Receipt Date: 20241115
  Transmission Date: 20250114
  Serious: No
  Sender: ROCHE
  Company Number: US-ROCHE-10000126133

PATIENT
  Sex: Male

DRUGS (1)
  1. CATHFLO ACTIVASE [Suspect]
     Active Substance: ALTEPLASE
     Indication: Vascular access site occlusion
     Route: 065
     Dates: start: 20241104

REACTIONS (2)
  - No adverse event [Unknown]
  - Product storage error [Unknown]
